FAERS Safety Report 5357401-7 (Version None)
Quarter: 2007Q2

REPORT INFORMATION
  Report Type: 
  Country: None (occurrence: None)
  Receive Date: 20070612
  Receipt Date: 20070612
  Transmission Date: 20071010
  Serious: Yes (Disabling, Other)
  Sender: FDA-Public Use
  Company Number: None

PATIENT
  Age: 48 Year
  Sex: Male
  Weight: 140.6151 kg

DRUGS (1)
  1. AVANDAMET [Suspect]
     Dosage: TWICE A DAY
     Dates: start: 20040711, end: 20070321

REACTIONS (2)
  - DEHYDRATION [None]
  - DRUG SCREEN POSITIVE [None]
